FAERS Safety Report 4894439-8 (Version None)
Quarter: 2006Q1

REPORT INFORMATION
  Report Type: 
  Country: None (occurrence: None)
  Receive Date: 20060127
  Receipt Date: 20060118
  Transmission Date: 20060701
  Serious: Yes (Death)
  Sender: FDA-Public Use
  Company Number: GB-ROCHE-432702

PATIENT
  Age: 61 Year
  Sex: Female

DRUGS (2)
  1. CYMEVENE [Suspect]
     Indication: BONE MARROW TRANSPLANT
     Route: 042
     Dates: start: 20051214, end: 20051217
  2. CYMEVENE [Suspect]
     Route: 042
     Dates: start: 20051218, end: 20051225

REACTIONS (2)
  - BONE MARROW FAILURE [None]
  - SEPSIS [None]
